FAERS Safety Report 24700051 (Version 3)
Quarter: 2024Q4

REPORT INFORMATION
  Report Type: Spontaneous
  Country: IN (occurrence: IN)
  Receive Date: 20241205
  Receipt Date: 20241218
  Transmission Date: 20250115
  Serious: Yes (Hospitalization)
  Sender: ROCHE
  Company Number: IN-ROCHE-10000147005

PATIENT
  Age: 67 Year
  Sex: Male

DRUGS (1)
  1. TECENTRIQ [Suspect]
     Active Substance: ATEZOLIZUMAB
     Indication: Oesophageal carcinoma
     Route: 042
     Dates: start: 20240627

REACTIONS (3)
  - Haemoglobin decreased [Unknown]
  - Anaemia [Unknown]
  - Pyrexia [Unknown]
